FAERS Safety Report 7352835-3 (Version None)
Quarter: 2011Q1

REPORT INFORMATION
  Report Type: 
  Country: None (occurrence: None)
  Receive Date: 20110315
  Receipt Date: 20110309
  Transmission Date: 20110831
  Serious: Yes (Death, Other)
  Sender: FDA-Public Use
  Company Number: BE-ROCHE-755624

PATIENT
  Sex: Female
  Weight: 70 kg

DRUGS (9)
  1. QUESTRAN [Concomitant]
  2. THEBACONE [Concomitant]
  3. MEDROL [Suspect]
     Indication: PNEUMONITIS
     Route: 065
     Dates: start: 20101101, end: 20101201
  4. TAXOTERE [Suspect]
     Indication: BREAST CANCER
     Dosage: DOSE: NP.
     Route: 042
     Dates: start: 20100610, end: 20100922
  5. ALPRAZOLAM [Concomitant]
     Indication: AUTISM
     Route: 048
  6. RESPERIDON [Concomitant]
     Indication: AUTISM
     Route: 048
  7. HERCEPTIN [Suspect]
     Indication: BREAST CANCER
     Dosage: DOSE: NP.
     Route: 042
     Dates: start: 20100610, end: 20110111
  8. CYCLOPHOSPHAMIDE [Suspect]
     Indication: BREAST CANCER
     Dosage: DOSE: NP.
     Route: 042
     Dates: start: 20100610, end: 20100922
  9. ZOVIRAX [Concomitant]
     Dates: start: 20101101, end: 20101201

REACTIONS (10)
  - ANAL HAEMORRHAGE [None]
  - DIABETES MELLITUS [None]
  - PULMONARY FIBROSIS [None]
  - ALOPECIA [None]
  - BONE PAIN [None]
  - ERYTHEMA [None]
  - PULMONARY TOXICITY [None]
  - ORGANISING PNEUMONIA [None]
  - CHEST PAIN [None]
  - DYSPNOEA [None]
